FAERS Safety Report 9747247 (Version 1)
Quarter: 2013Q4

REPORT INFORMATION
  Report Type: Spontaneous
  Country: GR (occurrence: GR)
  Receive Date: 20131212
  Receipt Date: 20131212
  Transmission Date: 20140711
  Serious: Yes (Hospitalization)
  Sender: FDA-Public Use
  Company Number: PHHY2013GR141735

PATIENT
  Age: 46 Year
  Sex: Male

DRUGS (6)
  1. RISPERIDONE [Suspect]
     Dosage: 2 MG/DAY
  2. FLUOXETINE [Interacting]
     Dosage: 20 MG/DAY
  3. OLANZAPINE [Concomitant]
     Dosage: 10 MG/DAY
  4. OLANZAPINE [Concomitant]
     Dosage: 20 MG/DAY
  5. AMANTADINE [Concomitant]
     Dosage: 100 MG, TID
  6. LORAZEPAM [Concomitant]
     Dosage: 2.5 MG, PRN

REACTIONS (12)
  - Urinary retention [Recovering/Resolving]
  - Urinary hesitation [Recovering/Resolving]
  - Constipation [Recovering/Resolving]
  - Extrapyramidal disorder [Recovering/Resolving]
  - Bradykinesia [Recovering/Resolving]
  - Posture abnormal [Recovering/Resolving]
  - Cogwheel rigidity [Recovering/Resolving]
  - Tremor [Recovering/Resolving]
  - Parkinsonian gait [Recovering/Resolving]
  - Drooling [Recovering/Resolving]
  - Dyskinesia [Recovering/Resolving]
  - Sedation [Recovering/Resolving]
